FAERS Safety Report 4697304-4 (Version None)
Quarter: 2005Q2

REPORT INFORMATION
  Report Type: 
  Country: None (occurrence: None)
  Receive Date: 20050621
  Receipt Date: 20050621
  Transmission Date: 20051028
  Serious: Yes (Hospitalization)
  Sender: FDA-Public Use
  Company Number: None

PATIENT
  Age: 81 Year
  Sex: Male
  Weight: 78.9 kg

DRUGS (12)
  1. LEVAQUIN [Suspect]
     Indication: BRONCHITIS
     Dosage: 500 MG  DAILY   INTRAVENOU
     Route: 042
     Dates: start: 20050531, end: 20050605
  2. LEVAQUIN [Suspect]
     Indication: BRONCHITIS
     Dosage: 500 MG   DAILY    ORAL
     Route: 048
     Dates: start: 20050606, end: 20050611
  3. LASIX [Concomitant]
  4. LEXAPRO [Concomitant]
  5. NEURONTIN [Concomitant]
  6. NOVULIN [Concomitant]
  7. POTASSIUM CHLORIDE [Concomitant]
  8. PREDNISONE TAB [Concomitant]
  9. ALBUTEROL [Concomitant]
  10. ATROPINE [Concomitant]
  11. ADVAIR [Concomitant]
  12. SPRIRVA [Concomitant]

REACTIONS (1)
  - CLOSTRIDIUM COLITIS [None]
